FAERS Safety Report 14022004 (Version 1)
Quarter: 2017Q3

REPORT INFORMATION
  Report Type: Spontaneous
  Country: JP (occurrence: JP)
  Receive Date: 20170928
  Receipt Date: 20170928
  Transmission Date: 20171128
  Serious: Yes (Other)
  Sender: FDA-Public Use
  Company Number: JP-PFIZER INC-2017418001

PATIENT
  Sex: Male

DRUGS (1)
  1. JZOLOFT 50MG [Suspect]
     Active Substance: SERTRALINE HYDROCHLORIDE
     Dosage: 50 MG, DAILY

REACTIONS (2)
  - Blood creatine phosphokinase increased [Unknown]
  - Back pain [Unknown]
